FAERS Safety Report 4490726-6 (Version None)
Quarter: 2004Q4

REPORT INFORMATION
  Report Type: 
  Country: None (occurrence: None)
  Receive Date: 20041027
  Receipt Date: 20041012
  Transmission Date: 20050328
  Serious: Yes (Life-Threatening)
  Sender: FDA-Public Use
  Company Number: 239881

PATIENT
  Age: 74 Year
  Sex: Male

DRUGS (2)
  1. NOVOSEVEN [Suspect]
     Indication: ACQUIRED HAEMOPHILIA
     Dosage: 20 UG/KG/H, INTRAVENOUS
     Route: 042
  2. PREDNISOLONE [Concomitant]

REACTIONS (3)
  - CEREBRAL ISCHAEMIA [None]
  - DRUG EFFECT DECREASED [None]
  - ENCEPHALOPATHY [None]
